FAERS Safety Report 13167255 (Version 3)
Quarter: 2017Q4

REPORT INFORMATION
  Report Type: Spontaneous
  Country: US (occurrence: US)
  Receive Date: 20170131
  Receipt Date: 20171223
  Transmission Date: 20180320
  Serious: Yes (Hospitalization, Other)
  Sender: FDA-Public Use
  Company Number: US-SUN PHARMACEUTICAL INDUSTRIES LTD-2017US-132445

PATIENT
  Age: 73 Year
  Sex: Female

DRUGS (8)
  1. BUPROPION. [Suspect]
     Active Substance: BUPROPION
     Route: 048
  2. DIAZEPAM. [Suspect]
     Active Substance: DIAZEPAM
     Indication: PRODUCT USED FOR UNKNOWN INDICATION
     Dosage: 5 MG, BID
     Route: 048
  3. BUPROPION. [Suspect]
     Active Substance: BUPROPION
     Indication: PRODUCT USED FOR UNKNOWN INDICATION
     Dosage: 100 MG, BID
     Route: 048
  4. HALOPERIDOL. [Suspect]
     Active Substance: HALOPERIDOL
     Dosage: AT BEDTIME
     Route: 042
  5. HALOPERIDOL. [Suspect]
     Active Substance: HALOPERIDOL
     Indication: DELIRIUM
     Dosage: 2 MG, PRN; EVERY 6 HOURS AS NEEDED, RECEIVING A TOTAL OF 6 MG IN A 24 HOURS PERIOD
     Route: 042
  6. HALOPERIDOL. [Suspect]
     Active Substance: HALOPERIDOL
     Dosage: EVERY 6 HOURS AS NEEDED, RECEIVING A TOTAL OF 6MG IN A 24 HOURS PERIOD. ; AS NECESSARY
     Route: 042
  7. DIAZEPAM. [Suspect]
     Active Substance: DIAZEPAM
     Route: 048
  8. HALOPERIDOL. [Suspect]
     Active Substance: HALOPERIDOL
     Dosage: AT BEDTIME
     Route: 042

REACTIONS (6)
  - Drug withdrawal syndrome [Unknown]
  - Condition aggravated [Unknown]
  - Dementia [Unknown]
  - Failure to thrive [Unknown]
  - Delirium [Unknown]
  - Parkinson^s disease [Unknown]
